FAERS Safety Report 7224607-1 (Version None)
Quarter: 2011Q1

REPORT INFORMATION
  Report Type: 
  Country: None (occurrence: None)
  Receive Date: 20110113
  Receipt Date: 20110110
  Transmission Date: 20110831
  Serious: Yes (Other)
  Sender: FDA-Public Use
  Company Number: US-AMGEN-USASP2010010173

PATIENT

DRUGS (6)
  1. PROCRIT [Suspect]
     Dosage: 20000 UNK, UNK
     Dates: start: 20100201, end: 20101201
  2. NEORAL [Concomitant]
  3. CELLCEPT [Concomitant]
  4. ACCUPRIL [Concomitant]
  5. PROCRIT [Suspect]
     Indication: ANAEMIA
     Dosage: 10000 UNK, QWK
     Dates: start: 20090601, end: 20100201
  6. FLAGYL [Concomitant]

REACTIONS (1)
  - ANTI-ERYTHROPOIETIN ANTIBODY [None]
